FAERS Safety Report 21673059 (Version 4)
Quarter: 2023Q1

REPORT INFORMATION
  Report Type: Report from Study
  Country: BR (occurrence: BR)
  Receive Date: 20221202
  Receipt Date: 20230217
  Transmission Date: 20230418
  Serious: Yes (Life-Threatening, Other)
  Sender: FDA-Public Use
  Company Number: BR-002147023-NVSC2022BR263180

PATIENT
  Sex: Female

DRUGS (6)
  1. RIBOCICLIB [Suspect]
     Active Substance: RIBOCICLIB
     Indication: Product used for unknown indication
     Dosage: 1 DOSAGE FORM, QD (MONDAY)
     Route: 065
  2. RIBOCICLIB [Suspect]
     Active Substance: RIBOCICLIB
     Dosage: 3 DOSAGE FORM (FOR 21 DAYS)
     Route: 065
  3. RIBOCICLIB [Suspect]
     Active Substance: RIBOCICLIB
     Dosage: 2 DOSAGE FORM (DOSE REDUCED)
     Route: 065
  4. RIBOCICLIB [Suspect]
     Active Substance: RIBOCICLIB
     Dosage: 2 DOSAGE FORM (FOR 21 DAYS)
     Route: 065
  5. RIBOCICLIB [Suspect]
     Active Substance: RIBOCICLIB
     Dosage: 1 DOSAGE FORM (DOSE REDUCED), (FOR 21 DAYS)
     Route: 065
  6. RIBOCICLIB [Suspect]
     Active Substance: RIBOCICLIB
     Dosage: UNK
     Route: 065

REACTIONS (20)
  - Near death experience [Unknown]
  - Blood pressure decreased [Unknown]
  - Metastasis [Unknown]
  - Pain [Recovered/Resolved]
  - Inflammation [Unknown]
  - Dysstasia [Recovered/Resolved]
  - Weight increased [Unknown]
  - Memory impairment [Unknown]
  - Sitting disability [Unknown]
  - Pain in extremity [Recovering/Resolving]
  - Eating disorder [Recovered/Resolved]
  - Dizziness [Recovered/Resolved]
  - Vomiting [Recovered/Resolved]
  - Back pain [Recovering/Resolving]
  - Vomiting [Recovered/Resolved]
  - Weight decreased [Recovered/Resolved]
  - Cough [Recovering/Resolving]
  - Vomiting [Recovering/Resolving]
  - Drug ineffective [Recovered/Resolved]
  - Inappropriate schedule of product administration [Unknown]
